FAERS Safety Report 8608327-4 (Version None)
Quarter: 2012Q3

REPORT INFORMATION
  Report Type: 
  Country: None (occurrence: None)
  Receive Date: 20120821
  Receipt Date: 20120809
  Transmission Date: 20120928
  Serious: No
  Sender: FDA-Public Use
  Company Number: JP-SANOFI-AVENTIS-2012SA048451

PATIENT
  Age: 58 Year
  Sex: Female

DRUGS (1)
  1. APIDRA [Suspect]
     Indication: DIABETES MELLITUS
     Dosage: DOSE REPORTED AS 8 UNITS IN THE MORNING, 4 UNITS AT NOON, 6 UNITS IN THE EVENING
     Route: 058
     Dates: start: 20101213, end: 20110204

REACTIONS (1)
  - NO ADVERSE EVENT [None]
